FAERS Safety Report 7391198-4 (Version None)
Quarter: 2011Q2

REPORT INFORMATION
  Report Type: 
  Country: None (occurrence: None)
  Receive Date: 20110404
  Receipt Date: 20100413
  Transmission Date: 20111010
  Serious: No
  Sender: FDA-Public Use
  Company Number: US-PFIZER INC-2010027723

PATIENT
  Sex: Male
  Weight: 100 kg

DRUGS (3)
  1. GENOTROPIN [Suspect]
     Indication: BLOOD GROWTH HORMONE DECREASED
     Dosage: 0.2 MG, 1X/DAY
     Dates: start: 20090101
  2. ANDROGEL [Concomitant]
     Dosage: UNK
     Dates: start: 20090101
  3. SYNTHROID [Concomitant]
     Dosage: UNK
     Dates: start: 20090101

REACTIONS (1)
  - FEELING ABNORMAL [None]
